FAERS Safety Report 4833021-5 (Version None)
Quarter: 2005Q4

REPORT INFORMATION
  Report Type: 
  Country: None (occurrence: None)
  Receive Date: 20051121
  Receipt Date: 20050222
  Transmission Date: 20060501
  Serious: Yes (Other)
  Sender: FDA-Public Use
  Company Number: US-BRISTOL-MYERS SQUIBB COMPANY-12872255

PATIENT
  Age: 62 Year
  Sex: Female
  Weight: 98 kg

DRUGS (3)
  1. ESTRACE [Suspect]
     Indication: HOT FLUSH
  2. PREMPRO [Suspect]
     Indication: HOT FLUSH
     Dates: start: 19980101, end: 20010101
  3. PREMARIN [Suspect]
     Indication: HOT FLUSH

REACTIONS (1)
  - BREAST CANCER [None]
